FAERS Safety Report 5159603-1 (Version None)
Quarter: 2006Q4

REPORT INFORMATION
  Report Type: 
  Country: None (occurrence: None)
  Receive Date: 20061129
  Receipt Date: 20061122
  Transmission Date: 20070319
  Serious: Yes (Death)
  Sender: FDA-Public Use
  Company Number: BR-JNJFOC-20061105790

PATIENT
  Age: 70 Year

DRUGS (2)
  1. REMINYL ER [Suspect]
     Indication: DEMENTIA ALZHEIMER'S TYPE
  2. LEXOTAN [Concomitant]

REACTIONS (1)
  - DEATH [None]
